FAERS Safety Report 9833236 (Version 1)
Quarter: 2014Q1

REPORT INFORMATION
  Report Type: Spontaneous
  Country: AU (occurrence: AU)
  Receive Date: 20140121
  Receipt Date: 20140121
  Transmission Date: 20141002
  Serious: Yes (Hospitalization)
  Sender: FDA-Public Use
  Company Number: PHHY2014AU004552

PATIENT
  Sex: Female

DRUGS (1)
  1. GENTEAL GEL [Suspect]
     Dosage: UNK UKN, UNK

REACTIONS (2)
  - Hypersensitivity [Unknown]
  - Dyspnoea [Unknown]
